FAERS Safety Report 15464277 (Version 5)
Quarter: 2019Q1

REPORT INFORMATION
  Report Type: Spontaneous
  Country: GB (occurrence: GB)
  Receive Date: 20181004
  Receipt Date: 20190315
  Transmission Date: 20190417
  Serious: Yes (Death)
  Sender: FDA-Public Use
  Company Number: GB-JNJFOC-20180937386

PATIENT
  Age: 31 Year
  Sex: Female

DRUGS (19)
  1. PREDNISOLONE. [Suspect]
     Active Substance: PREDNISOLONE
     Indication: INFLAMMATORY BOWEL DISEASE
     Dosage: 5-40 MG
     Route: 048
     Dates: start: 2008, end: 2018
  2. PANTOPRAZOLE [Concomitant]
     Active Substance: PANTOPRAZOLE
     Dosage: FROM EARLY PREGNANCY
     Route: 065
  3. VEDOLIZUMAB [Suspect]
     Active Substance: VEDOLIZUMAB
     Indication: INFLAMMATORY BOWEL DISEASE
     Dosage: STOPPED BY 32 WEEKS PREGNANT
     Route: 042
     Dates: start: 201806, end: 201807
  4. VEDOLIZUMAB [Suspect]
     Active Substance: VEDOLIZUMAB
     Indication: INFLAMMATORY BOWEL DISEASE
     Dosage: STOPPED BY 32 WEEKS PREGNANT
     Route: 042
     Dates: start: 2018, end: 201810
  5. MERCAPTOPURINE ANHYDROUS [Suspect]
     Active Substance: MERCAPTOPURINE
     Indication: INFLAMMATORY BOWEL DISEASE
     Route: 048
     Dates: start: 201306, end: 201404
  6. CICLOSPORIN [Suspect]
     Active Substance: CYCLOSPORINE
     Indication: INFLAMMATORY BOWEL DISEASE
     Route: 048
     Dates: start: 200810, end: 200904
  7. AMITRIPTYLINE [Concomitant]
     Active Substance: AMITRIPTYLINE
     Dosage: STOPPED BY 32 WEEKS PREGNANT
     Route: 065
     Dates: end: 2018
  8. ESOMEPRAZOLE. [Concomitant]
     Active Substance: ESOMEPRAZOLE MAGNESIUM
     Dosage: AT 33 WEEKS
     Route: 065
  9. SERTRALINE [Concomitant]
     Active Substance: SERTRALINE HYDROCHLORIDE
     Dosage: FROM EARLY PREGNANCY
     Route: 065
  10. METHOTREXATE. [Suspect]
     Active Substance: METHOTREXATE
     Indication: INFLAMMATORY BOWEL DISEASE
     Route: 048
     Dates: start: 200910, end: 201010
  11. CYCLIZINE [Concomitant]
     Active Substance: CYCLIZINE
     Dosage: AT 33 WEEKS
     Route: 065
  12. BETAMETHASONE. [Concomitant]
     Active Substance: BETAMETHASONE
     Dosage: AT 33 WEEKS PREGNANT
     Route: 065
  13. INFLIXIMAB, RECOMBINANT [Suspect]
     Active Substance: INFLIXIMAB
     Indication: INFLAMMATORY BOWEL DISEASE
     Route: 042
     Dates: start: 200703, end: 200710
  14. AZATHIOPRINE. [Suspect]
     Active Substance: AZATHIOPRINE
     Indication: INFLAMMATORY BOWEL DISEASE
     Route: 048
     Dates: start: 201404, end: 201408
  15. RANITIDINE. [Concomitant]
     Active Substance: RANITIDINE
     Dosage: AT 33 WEEKS
     Route: 065
  16. ADALIMUMAB [Suspect]
     Active Substance: ADALIMUMAB
     Indication: INFLAMMATORY BOWEL DISEASE
     Route: 058
     Dates: start: 200904, end: 200910
  17. VEDOLIZUMAB [Suspect]
     Active Substance: VEDOLIZUMAB
     Indication: INFLAMMATORY BOWEL DISEASE
     Dosage: STOPPED BY 32 WEEKS PREGNANT
     Route: 042
     Dates: start: 201604
  18. PROCHLORPERAZINE. [Concomitant]
     Active Substance: PROCHLORPERAZINE
     Dosage: FROM EARLY PREGNANCY
     Route: 065
  19. PARACETAMOL [Concomitant]
     Active Substance: ACETAMINOPHEN
     Dosage: FROM EARLY PREGNANCY
     Route: 065

REACTIONS (2)
  - Rectal cancer metastatic [Fatal]
  - Exposure during pregnancy [Recovered/Resolved]

NARRATIVE: CASE EVENT DATE: 20180809
